FAERS Safety Report 4445047-4 (Version None)
Quarter: 2004Q3

REPORT INFORMATION
  Report Type: 
  Country: None (occurrence: None)
  Receive Date: 20040903
  Receipt Date: 20040819
  Transmission Date: 20050211
  Serious: Yes (Other)
  Sender: FDA-Public Use
  Company Number: 200407299

PATIENT
  Age: 80 Year
  Sex: Male

DRUGS (15)
  1. RESTASIS [Suspect]
     Indication: KERATOCONJUNCTIVITIS SICCA
     Dosage: 2 DROP BID EYE
     Route: 047
     Dates: start: 20040320, end: 20040710
  2. ZANTAC [Concomitant]
  3. TRIAZOLAM [Concomitant]
  4. NITROGLYCERIN [Concomitant]
  5. ASPIRIN [Concomitant]
  6. REFRESH PLUS [Concomitant]
  7. REFRESH CELLUVISC [Concomitant]
  8. MULTI-VITAMINS [Concomitant]
  9. GLUCOSAMINE + CHONDROITIN [Concomitant]
  10. OMEGA 3 [Concomitant]
  11. VITAMIN E [Concomitant]
  12. LUTEIN [Concomitant]
  13. ZOCOR [Concomitant]
  14. LORATADINE [Concomitant]
  15. METOPROLOL [Concomitant]

REACTIONS (4)
  - CARCINOMA IN SITU OF SKIN [None]
  - EYE IRRITATION [None]
  - EYE PRURITUS [None]
  - METASTASES TO LYMPH NODES [None]
